FAERS Safety Report 9079621 (Version 1)
Quarter: 2013Q1

REPORT INFORMATION
  Report Type: Report from Study
  Country: US (occurrence: US)
  Receive Date: 20130130
  Receipt Date: 20130130
  Transmission Date: 20140127
  Serious: Yes (Hospitalization, Other)
  Sender: FDA-Public Use
  Company Number: US-ABBOTT-12P-163-0959344-00

PATIENT
  Age: 55 Year
  Sex: Female

DRUGS (13)
  1. HUMIRA 40 MG/0.8 ML PEN [Suspect]
     Indication: RHEUMATOID ARTHRITIS
  2. HUMIRA 40 MG/0.8 ML PEN [Suspect]
     Dosage: INTERRUPTED
     Dates: end: 201207
  3. METHOTREXATE [Suspect]
     Indication: RHEUMATOID ARTHRITIS
  4. METHOTREXATE [Suspect]
     Dosage: 4 TABLETS X 2.5 MG
  5. METHOTREXATE [Suspect]
  6. ROZEREM [Concomitant]
     Indication: INSOMNIA
     Dosage: AT BEDTIME
  7. NEXIUM [Concomitant]
     Indication: GASTROOESOPHAGEAL REFLUX DISEASE
     Dosage: 40 MG DAILY
  8. ZOLOFT [Concomitant]
     Indication: DEPRESSION
  9. ABILIFY [Concomitant]
     Indication: DEPRESSION
     Dosage: 15 MG DAILY
  10. PHENERGAN [Concomitant]
     Indication: NAUSEA
  11. OXYCONTIN [Concomitant]
     Indication: PAIN
  12. MIRAPEX [Concomitant]
     Indication: RESTLESS LEGS SYNDROME
  13. UNKNOWN MEDICATION [Concomitant]
     Indication: RESTLESS LEGS SYNDROME

REACTIONS (11)
  - Hip fracture [Recovering/Resolving]
  - Fall [Recovered/Resolved]
  - Nausea [Unknown]
  - Drug ineffective [Recovering/Resolving]
  - Pyrexia [Not Recovered/Not Resolved]
  - Pyrexia [Unknown]
  - Arthralgia [Not Recovered/Not Resolved]
  - Fatigue [Not Recovered/Not Resolved]
  - Pain [Not Recovered/Not Resolved]
  - Rheumatoid arthritis [Not Recovered/Not Resolved]
  - Pain [Not Recovered/Not Resolved]
